FAERS Safety Report 5029718-7 (Version None)
Quarter: 2006Q2

REPORT INFORMATION
  Report Type: 
  Country: None (occurrence: None)
  Receive Date: 20060614
  Receipt Date: 20060624
  Transmission Date: 20061013
  Serious: Yes (Hospitalization)
  Sender: FDA-Public Use
  Company Number: US200605001713

PATIENT
  Age: 77 Year
  Sex: Female

DRUGS (2)
  1. FORTEO [Suspect]
     Indication: OSTEOPOROSIS
     Dosage: 20 UG DAILY (1/D)
     Dates: start: 20060329
  2. FORTEO [Concomitant]

REACTIONS (8)
  - ASTHENIA [None]
  - DIFFICULTY IN WALKING [None]
  - GAIT DISTURBANCE [None]
  - MONOPLEGIA [None]
  - MUSCULAR WEAKNESS [None]
  - MYALGIA [None]
  - PHARMACEUTICAL PRODUCT COMPLAINT [None]
  - WRONG TECHNIQUE IN DRUG USAGE PROCESS [None]
